FAERS Safety Report 8790605 (Version 2)
Quarter: 2012Q4

REPORT INFORMATION
  Report Type: Spontaneous
  Country: AT (occurrence: None)
  Receive Date: 20120905
  Receipt Date: 20120928
  Transmission Date: 20130627
  Serious: Yes (Life-Threatening, Other)
  Sender: FDA-Public Use
  Company Number: AT-009259

PATIENT
  Age: 71 Year
  Sex: Female

DRUGS (4)
  1. PICOPREP [Suspect]
     Indication: BOWEL PREPARATION
     Dosage: (2 satchets)
  2. HYDROCHLOROTHIAZIDE (HCT) [Suspect]
     Indication: PRODUCT USED FOR UNKNOWN INDICATION
  3. MIDAZOLAM [Suspect]
  4. PROPOFOL (PROPOFOL) [Suspect]
     Indication: SEDATION

REACTIONS (5)
  - Coma [None]
  - Electrolyte imbalance [None]
  - Malaise [None]
  - Hyponatraemia [None]
  - Hypochloraemia [None]
